FAERS Safety Report 22736325 (Version 2)
Quarter: 2023Q4

REPORT INFORMATION
  Report Type: Report from Study
  Country: US (occurrence: US)
  Receive Date: 20230721
  Receipt Date: 20231012
  Transmission Date: 20240109
  Serious: Yes (Death, Hospitalization, Other)
  Sender: FDA-Public Use
  Company Number: US-ARGENX-2023-ARGX-US001639

PATIENT

DRUGS (2)
  1. VYVGART [Suspect]
     Active Substance: EFGARTIGIMOD ALFA-FCAB
     Indication: Myasthenia gravis
     Dosage: 10 MG/KG
     Route: 042
  2. VYVGART [Suspect]
     Active Substance: EFGARTIGIMOD ALFA-FCAB
     Dosage: 10 MG/KG
     Route: 042
     Dates: start: 20230629

REACTIONS (6)
  - Death [Fatal]
  - Surgery [Unknown]
  - Vascular device infection [Unknown]
  - Blood potassium increased [Unknown]
  - Incisional drainage [Unknown]
  - Wound closure [Unknown]

NARRATIVE: CASE EVENT DATE: 20230925
